FAERS Safety Report 6814512-4 (Version None)
Quarter: 2010Q2

REPORT INFORMATION
  Report Type: 
  Country: None (occurrence: None)
  Receive Date: 20100629
  Receipt Date: 20100622
  Transmission Date: 20101027
  Serious: Yes (Life-Threatening, Hospitalization)
  Sender: FDA-Public Use
  Company Number: WAES 0912USA02304

PATIENT
  Age: 71 Year
  Sex: Male
  Weight: 87.9978 kg

DRUGS (17)
  1. JANUVIA [Suspect]
     Indication: TYPE 2 DIABETES MELLITUS
     Dosage: 50 MG/DAILY/PO
     Route: 048
     Dates: start: 20080512, end: 20080913
  2. TAB PLACEBO (UNSPECIFIED) 1 TAB [Suspect]
     Indication: TYPE 2 DIABETES MELLITUS
     Dosage: 0.5 TAB/DAILY/PO; 1 TAB/DAILY/PO; 1.5 TAB/DAILY/PO; 2 TAB/DAILY/PO; 3 TAB/DAILY/PO TAB
     Route: 048
     Dates: start: 20080607, end: 20080623
  3. TAB PLACEBO (UNSPECIFIED) 1 TAB [Suspect]
     Indication: TYPE 2 DIABETES MELLITUS
     Dosage: 0.5 TAB/DAILY/PO; 1 TAB/DAILY/PO; 1.5 TAB/DAILY/PO; 2 TAB/DAILY/PO; 3 TAB/DAILY/PO TAB
     Route: 048
     Dates: start: 20080624, end: 20080713
  4. TAB PLACEBO (UNSPECIFIED) 1 TAB [Suspect]
     Indication: TYPE 2 DIABETES MELLITUS
     Dosage: 0.5 TAB/DAILY/PO; 1 TAB/DAILY/PO; 1.5 TAB/DAILY/PO; 2 TAB/DAILY/PO; 3 TAB/DAILY/PO TAB
     Route: 048
     Dates: start: 20080714, end: 20080824
  5. TAB PLACEBO (UNSPECIFIED) 1 TAB [Suspect]
     Indication: TYPE 2 DIABETES MELLITUS
     Dosage: 0.5 TAB/DAILY/PO; 1 TAB/DAILY/PO; 1.5 TAB/DAILY/PO; 2 TAB/DAILY/PO; 3 TAB/DAILY/PO TAB
     Route: 048
     Dates: start: 20080825, end: 20080913
  6. TAB PLACEBO (UNSPECIFIED) 1 TAB [Suspect]
     Indication: TYPE 2 DIABETES MELLITUS
     Dosage: 0.5 TAB/DAILY/PO; 1 TAB/DAILY/PO; 1.5 TAB/DAILY/PO; 2 TAB/DAILY/PO; 3 TAB/DAILY/PO TAB
     Route: 048
     Dates: start: 20080918, end: 20081201
  7. PLACEBO BASELINE THERAPY UNK [Suspect]
     Indication: DRUG USE FOR UNKNOWN INDICATION
     Dosage: /PO
     Route: 048
     Dates: start: 20080422, end: 20080511
  8. ADVAIR DISKUS 100/50 [Concomitant]
  9. COZAAR [Concomitant]
  10. NEXIUM [Concomitant]
  11. ZETIA [Concomitant]
  12. ALBUTEROL [Concomitant]
  13. COLESTIPOL HYDROCHLORIDE [Concomitant]
  14. GABAPENTIN [Concomitant]
  15. POTASSIUM CHLORIDE [Concomitant]
  16. PRAVASTATIN SODIUM [Concomitant]
  17. WARFARIN [Concomitant]

REACTIONS (3)
  - GUILLAIN-BARRE SYNDROME [None]
  - MUSCULAR WEAKNESS [None]
  - RESPIRATORY DISTRESS [None]
